FAERS Safety Report 25364644 (Version 1)
Quarter: 2025Q2

REPORT INFORMATION
  Report Type: Spontaneous
  Country: TR (occurrence: TR)
  Receive Date: 20250527
  Receipt Date: 20250527
  Transmission Date: 20250717
  Serious: Yes (Other)
  Sender: AMGEN
  Company Number: TR-AMGEN-TURSP2025100057

PATIENT

DRUGS (6)
  1. ADALIMUMAB [Suspect]
     Active Substance: ADALIMUMAB
     Indication: Spondylitis
     Route: 065
  2. ADALIMUMAB [Suspect]
     Active Substance: ADALIMUMAB
     Indication: Rheumatoid arthritis
  3. ETANERCEPT [Suspect]
     Active Substance: ETANERCEPT
     Indication: Rheumatoid arthritis
     Route: 065
  4. ETANERCEPT [Suspect]
     Active Substance: ETANERCEPT
     Indication: Spondylitis
  5. ETANERCEPT [Suspect]
     Active Substance: ETANERCEPT
     Indication: Ankylosing spondylitis
  6. ETANERCEPT [Suspect]
     Active Substance: ETANERCEPT
     Indication: Spondyloarthropathy

REACTIONS (27)
  - Neoplasm malignant [Unknown]
  - Deafness [Unknown]
  - Inflammatory bowel disease [Unknown]
  - Uveitis [Unknown]
  - Systemic lupus erythematosus [Unknown]
  - Leukopenia [Unknown]
  - Tuberculosis [Unknown]
  - Thrombocytopenia [Unknown]
  - Nervous system disorder [Unknown]
  - Raynaud^s phenomenon [Unknown]
  - Infusion related reaction [Unknown]
  - Skin lesion [Unknown]
  - Cardiovascular disorder [Unknown]
  - Gastrointestinal disorder [Unknown]
  - Proteinuria [Unknown]
  - Liver function test abnormal [Unknown]
  - Herpes zoster [Unknown]
  - Sarcoidosis [Unknown]
  - Hypersensitivity [Unknown]
  - Injection site reaction [Unknown]
  - Psoriasis [Unknown]
  - Infection [Unknown]
  - Dyspnoea [Unknown]
  - Anaemia [Unknown]
  - Vasculitis [Unknown]
  - Alopecia [Unknown]
  - Headache [Unknown]
